FAERS Safety Report 12424459 (Version 1)
Quarter: 2016Q2

REPORT INFORMATION
  Report Type: Spontaneous
  Country: US (occurrence: US)
  Receive Date: 20160601
  Receipt Date: 20160601
  Transmission Date: 20160815
  Serious: No
  Sender: FDA-Public Use
  Company Number: US-NOVEN PHARMACEUTICALS, INC.-US2016000017

PATIENT
  Age: 8 Year
  Sex: Male

DRUGS (2)
  1. DAYTRANA [Suspect]
     Active Substance: METHYLPHENIDATE
     Indication: ATTENTION DEFICIT/HYPERACTIVITY DISORDER
     Dosage: 10 MG, UNKNOWN
     Route: 062
     Dates: start: 20160102, end: 20160102
  2. DAYTRANA [Suspect]
     Active Substance: METHYLPHENIDATE
     Dosage: USING TWO, 10 MG PATCHES, UNKNOWN
     Route: 062
     Dates: start: 20160103, end: 20160105

REACTIONS (3)
  - Drug ineffective [Unknown]
  - Off label use [Recovered/Resolved]
  - Wrong technique in product usage process [Recovered/Resolved]

NARRATIVE: CASE EVENT DATE: 20160102
